FAERS Safety Report 7223018-2 (Version None)
Quarter: 2011Q1

REPORT INFORMATION
  Report Type: 
  Country: None (occurrence: None)
  Receive Date: 20110112
  Receipt Date: 20110112
  Transmission Date: 20110831
  Serious: Yes (Hospitalization, Other)
  Sender: FDA-Public Use
  Company Number: JP-ABBOTT-10P-087-0633406-00

PATIENT
  Sex: Female
  Weight: 60 kg

DRUGS (8)
  1. FAMOTIDINE [Concomitant]
     Indication: PROPHYLAXIS AGAINST GASTROINTESTINAL ULCER
     Dosage: 10MG DAILY
  2. HUMIRA [Suspect]
     Indication: RHEUMATOID ARTHRITIS
     Route: 058
     Dates: start: 20100126, end: 20100223
  3. PREDNISOLONE [Concomitant]
     Indication: RHEUMATOID ARTHRITIS
     Dosage: 8MG DAILY
     Route: 048
  4. ALENDRONATE SODIUM [Concomitant]
     Indication: OSTEOPOROSIS PROPHYLAXIS
     Dosage: 35MG/WK
  5. CALCITRIOL [Concomitant]
     Indication: OSTEOPOROSIS PROPHYLAXIS
     Dosage: 0.5MG DAILY
  6. LOXOPROFEN SODIUM HYDRATE [Concomitant]
     Indication: RHEUMATOID ARTHRITIS
  7. TACROLIMUS [Concomitant]
     Indication: RHEUMATOID ARTHRITIS
     Dosage: 1.5MG DAILY
  8. OMEPRAZOLE [Concomitant]
     Indication: PROPHYLAXIS AGAINST GASTROINTESTINAL ULCER
     Dosage: 10MG DAILY

REACTIONS (2)
  - DEAFNESS NEUROSENSORY [None]
  - DEAFNESS BILATERAL [None]
